FAERS Safety Report 21681351 (Version 1)
Quarter: 2022Q4

REPORT INFORMATION
  Report Type: Spontaneous
  Country: US (occurrence: None)
  Receive Date: 20221202
  Receipt Date: 20221202
  Transmission Date: 20230113
  Serious: No
  Sender: FDA-Public Use
  Company Number: None

PATIENT
  Age: 49 Year
  Sex: Female
  Weight: 214.55 kg

DRUGS (12)
  1. SPRYCEL [Suspect]
     Active Substance: DASATINIB
     Indication: Chronic myeloid leukaemia
     Dosage: FREQUENCY : DAILY;?
     Route: 048
  2. BACLOFEN [Concomitant]
     Active Substance: BACLOFEN
  3. IBUPROFEN [Concomitant]
     Active Substance: IBUPROFEN
  4. DIOSMIN-HESPERIDIN-GRAPE [Concomitant]
  5. FUROSEMIDE [Concomitant]
     Active Substance: FUROSEMIDE
  6. NORCO [Concomitant]
     Active Substance: ACETAMINOPHEN\HYDROCODONE BITARTRATE
  7. HYDROXYUREA [Concomitant]
     Active Substance: HYDROXYUREA
  8. JANUVIA [Concomitant]
     Active Substance: SITAGLIPTIN PHOSPHATE
  9. LINZESS [Concomitant]
     Active Substance: LINACLOTIDE
  10. METOPROLOL [Concomitant]
  11. MUCINEX [Concomitant]
     Active Substance: GUAIFENESIN
  12. VISTARIL [Concomitant]
     Active Substance: HYDROXYZINE PAMOATE

REACTIONS (1)
  - Illness [None]
